FAERS Safety Report 7078795-0 (Version None)
Quarter: 2010Q4

REPORT INFORMATION
  Report Type: 
  Country: None (occurrence: None)
  Receive Date: 20101102
  Receipt Date: 20101025
  Transmission Date: 20110411
  Serious: Yes (Hospitalization)
  Sender: FDA-Public Use
  Company Number: FR-PFIZER INC-2010135025

PATIENT
  Age: 31 Year
  Sex: Female

DRUGS (7)
  1. SALAZOPYRINE [Suspect]
     Dosage: 500 MG, 3X/DAY
     Route: 048
     Dates: start: 20100730, end: 20100918
  2. HEXABRIX [Concomitant]
     Dosage: UNK
     Route: 042
     Dates: start: 20100819, end: 20100819
  3. CORTANCYL [Concomitant]
     Dosage: 15 MG, 1X/DAY
     Route: 048
     Dates: start: 20070101
  4. APRANAX [Concomitant]
     Dosage: 550 MG, 1X/DAY
     Route: 048
     Dates: start: 20070101
  5. LAMALINE [Concomitant]
     Dosage: UNK
     Dates: start: 20070101
  6. TARDYFERON [Concomitant]
     Dosage: UNK
     Dates: start: 20080101
  7. LANZOR [Concomitant]
     Dosage: UNK
     Dates: start: 20080101

REACTIONS (6)
  - CELL DEATH [None]
  - CYTOLYTIC HEPATITIS [None]
  - DRUG RASH WITH EOSINOPHILIA AND SYSTEMIC SYMPTOMS [None]
  - EOSINOPHILIA [None]
  - RASH [None]
  - STAPHYLOCOCCAL INFECTION [None]
